FAERS Safety Report 6575932-9 (Version None)
Quarter: 2010Q1

REPORT INFORMATION
  Report Type: 
  Country: None (occurrence: None)
  Receive Date: 20100209
  Receipt Date: 20100208
  Transmission Date: 20100710
  Serious: Yes (Hospitalization)
  Sender: FDA-Public Use
  Company Number: DE-ABBOTT-09P-062-0585823-00

PATIENT
  Sex: Female

DRUGS (9)
  1. KLACID [Interacting]
     Indication: HELICOBACTER GASTRITIS
     Route: 048
     Dates: start: 20090130, end: 20090211
  2. PANTOPRAZOLE SODIUM [Interacting]
     Indication: HELICOBACTER GASTRITIS
     Dosage: 40 MG OD
     Route: 048
     Dates: start: 20090130
  3. AMOXICILLIN [Suspect]
     Indication: HELICOBACTER GASTRITIS
     Route: 048
     Dates: start: 20090130, end: 20090211
  4. AVELOX [Suspect]
     Indication: BRONCHITIS
     Dosage: 400 MG OD
     Route: 048
     Dates: start: 20090106, end: 20090111
  5. CIPRO [Suspect]
     Indication: URINARY TRACT INFECTION
     Route: 048
     Dates: start: 20090205, end: 20090208
  6. RULID [Suspect]
     Indication: RESPIRATORY TRACT INFECTION
     Dosage: 300 MG OD
     Route: 048
     Dates: start: 20090123, end: 20090130
  7. CITALOPRAM [Concomitant]
     Indication: DEPRESSION
     Dosage: 20 MG OD
     Route: 048
     Dates: start: 20060101
  8. TOREM [Concomitant]
     Indication: HYPERTENSION
     Route: 048
     Dates: start: 20090130
  9. ZYPREXA [Concomitant]
     Indication: SCHIZOAFFECTIVE DISORDER BIPOLAR TYPE
     Dosage: 15 MG OD
     Route: 048
     Dates: start: 20060101

REACTIONS (4)
  - CLOSTRIDIUM DIFFICILE COLITIS [None]
  - DIARRHOEA [None]
  - DRUG INTERACTION [None]
  - URINARY TRACT INFECTION [None]
